FAERS Safety Report 9177484 (Version 1)
Quarter: 2013Q1

REPORT INFORMATION
  Report Type: Spontaneous
  Country: CN (occurrence: None)
  Receive Date: 20130319
  Receipt Date: 20130319
  Transmission Date: 20140127
  Serious: Yes (Hospitalization, Other)
  Sender: FDA-Public Use
  Company Number: 2013-04267

PATIENT
  Age: 14 Year
  Sex: Male

DRUGS (3)
  1. LEVETIRACETAM (UNKNOWN) (LEVETIRACETAM) UNK, UNKUNK [Suspect]
     Indication: LENNOX-GASTAUT SYNDROME
  2. PHENOBARBITAL/00023202/ (PHENOBARBITAL SODIUM) [Concomitant]
  3. TOPIRAMATE (TOPIRAMATE) [Concomitant]

REACTIONS (7)
  - Status epilepticus [None]
  - Partial seizures [None]
  - Petit mal epilepsy [None]
  - Headache [None]
  - Dysphagia [None]
  - Corneal reflex decreased [None]
  - Insomnia [None]
